FAERS Safety Report 22737373 (Version 3)
Quarter: 2023Q4

REPORT INFORMATION
  Report Type: Report from Study
  Country: CN (occurrence: CN)
  Receive Date: 20230721
  Receipt Date: 20231030
  Transmission Date: 20240109
  Serious: Yes (Hospitalization)
  Sender: FDA-Public Use
  Company Number: CN-ELI_LILLY_AND_COMPANY-CN202307009927

PATIENT
  Age: 48 Year
  Sex: Male
  Weight: 58 kg

DRUGS (24)
  1. GEMCITABINE HYDROCHLORIDE [Suspect]
     Active Substance: GEMCITABINE HYDROCHLORIDE
     Indication: Pancreatic carcinoma
     Dosage: 1590 MG, CYCLICAL MONTHLY (Q4W, D1, 8, 15)
     Route: 042
     Dates: start: 20220831, end: 20220831
  2. GEMCITABINE HYDROCHLORIDE [Suspect]
     Active Substance: GEMCITABINE HYDROCHLORIDE
     Dosage: 1580 MG, CYCLICAL
     Route: 042
     Dates: start: 20220907, end: 20220907
  3. GEMCITABINE HYDROCHLORIDE [Suspect]
     Active Substance: GEMCITABINE HYDROCHLORIDE
     Dosage: 1580 MG, CYCLICAL
     Route: 042
     Dates: start: 20220916, end: 20220916
  4. GEMCITABINE HYDROCHLORIDE [Suspect]
     Active Substance: GEMCITABINE HYDROCHLORIDE
     Dosage: 1600 MG, CYCLICAL
     Route: 042
     Dates: start: 20220928, end: 20220928
  5. GEMCITABINE HYDROCHLORIDE [Suspect]
     Active Substance: GEMCITABINE HYDROCHLORIDE
     Dosage: 1580 MG, CYCLICAL
     Route: 042
     Dates: start: 20221006, end: 20221006
  6. GEMCITABINE HYDROCHLORIDE [Suspect]
     Active Substance: GEMCITABINE HYDROCHLORIDE
     Dosage: 1600 MG, CYCLICAL
     Route: 042
     Dates: start: 20221013, end: 20230117
  7. GEMCITABINE HYDROCHLORIDE [Suspect]
     Active Substance: GEMCITABINE HYDROCHLORIDE
     Dosage: 1630 MG, CYCLICAL
     Route: 042
     Dates: start: 20230127, end: 20230127
  8. GEMCITABINE HYDROCHLORIDE [Suspect]
     Active Substance: GEMCITABINE HYDROCHLORIDE
     Dosage: 1650 MG, CYCLICAL
     Route: 042
     Dates: start: 20230203, end: 20230203
  9. GEMCITABINE HYDROCHLORIDE [Suspect]
     Active Substance: GEMCITABINE HYDROCHLORIDE
     Dosage: 1660 MG, CYCLICAL
     Route: 042
     Dates: start: 20230213, end: 20230316
  10. GEMCITABINE HYDROCHLORIDE [Suspect]
     Active Substance: GEMCITABINE HYDROCHLORIDE
     Dosage: 1600 MG, CYCLICAL
     Route: 042
     Dates: start: 20230324, end: 20230324
  11. GEMCITABINE HYDROCHLORIDE [Suspect]
     Active Substance: GEMCITABINE HYDROCHLORIDE
     Dosage: 1660 MG, CYCLICAL
     Route: 042
     Dates: start: 20230331, end: 20230331
  12. GEMCITABINE HYDROCHLORIDE [Suspect]
     Active Substance: GEMCITABINE HYDROCHLORIDE
     Dosage: 1650 MG, CYCLICAL
     Route: 042
     Dates: start: 20230418, end: 20230418
  13. GEMCITABINE HYDROCHLORIDE [Suspect]
     Active Substance: GEMCITABINE HYDROCHLORIDE
     Dosage: 1660 MG, CYCLICAL
     Route: 042
     Dates: start: 20230425, end: 20230425
  14. GEMCITABINE HYDROCHLORIDE [Suspect]
     Active Substance: GEMCITABINE HYDROCHLORIDE
     Dosage: 1670 MG, CYCLICAL
     Route: 042
     Dates: start: 20230509, end: 20230509
  15. GEMCITABINE HYDROCHLORIDE [Suspect]
     Active Substance: GEMCITABINE HYDROCHLORIDE
     Dosage: 1670 MG, CYCLICAL
     Route: 042
     Dates: start: 20230516, end: 20230703
  16. PACLITAXEL [Concomitant]
     Active Substance: PACLITAXEL
     Indication: Pancreatic carcinoma
     Dosage: 198.75 MG, CYCLICAL  MONTHLY (Q4W, D1, 8, 15)
     Route: 042
     Dates: start: 20220831, end: 20220831
  17. PACLITAXEL [Concomitant]
     Active Substance: PACLITAXEL
     Dosage: 197.5 MG, CYCLICAL
     Route: 042
     Dates: start: 20220907, end: 20220916
  18. PACLITAXEL [Concomitant]
     Active Substance: PACLITAXEL
     Dosage: 200 MG, CYCLICAL
     Route: 042
     Dates: start: 20220928, end: 20220928
  19. PACLITAXEL [Concomitant]
     Active Substance: PACLITAXEL
     Dosage: 197.5 MG, CYCLICAL
     Route: 042
     Dates: start: 20221006, end: 20221006
  20. PACLITAXEL [Concomitant]
     Active Substance: PACLITAXEL
     Dosage: 200 MG, CYCLICAL
     Route: 042
     Dates: start: 20221013, end: 20221101
  21. PACLITAXEL [Concomitant]
     Active Substance: PACLITAXEL
     Dosage: 200 MG, CYCLICAL
     Route: 042
     Dates: start: 20221129, end: 20221206
  22. PACLITAXEL [Concomitant]
     Active Substance: PACLITAXEL
     Dosage: 200 MG, CYCLICAL
     Route: 042
     Dates: start: 20230117, end: 20230214
  23. PACLITAXEL [Concomitant]
     Active Substance: PACLITAXEL
     Dosage: 200 MG, CYCLICAL
     Route: 042
     Dates: start: 20230221, end: 20230228
  24. PACLITAXEL [Concomitant]
     Active Substance: PACLITAXEL
     Dosage: 200 MG, CYCLICAL
     Route: 042
     Dates: start: 20230316, end: 20230703

REACTIONS (1)
  - Weight decreased [Not Recovered/Not Resolved]

NARRATIVE: CASE EVENT DATE: 20230703
